FAERS Safety Report 19490284 (Version 5)
Quarter: 2021Q3

REPORT INFORMATION
  Report Type: Spontaneous
  Country: GR (occurrence: GR)
  Receive Date: 20210705
  Receipt Date: 20210903
  Transmission Date: 20211014
  Serious: Yes (Other)
  Sender: FDA-Public Use
  Company Number: GR-CELLTRION INC.-2021GR008880

PATIENT

DRUGS (2)
  1. INFLIXIMAB [Suspect]
     Active Substance: INFLIXIMAB
     Dosage: THIRD INTRAVENOUS INFUSION
     Route: 042
  2. INFLIXIMAB [Suspect]
     Active Substance: INFLIXIMAB
     Indication: CROHN^S DISEASE
     Dosage: UNK
     Route: 042

REACTIONS (4)
  - Hypersensitivity [Recovered/Resolved]
  - Drug level decreased [Unknown]
  - Antibody test abnormal [Unknown]
  - Type I hypersensitivity [Recovered/Resolved]
